FAERS Safety Report 4335175-6 (Version None)
Quarter: 2004Q2

REPORT INFORMATION
  Report Type: 
  Country: None (occurrence: None)
  Receive Date: 20040402
  Receipt Date: 20040130
  Transmission Date: 20050107
  Serious: Yes (Life-Threatening)
  Sender: FDA-Public Use
  Company Number: 235141

PATIENT
  Age: 52 Year
  Sex: Female
  Weight: 81.6 kg

DRUGS (2)
  1. NOVOLOG [Suspect]
     Indication: DIABETES MELLITUS INSULIN-DEPENDENT
     Dosage: 9.9 LU, QD; SUBCUTANEOUS
     Route: 058
     Dates: start: 20010101
  2. MINIMED PARADIGM INSULIN PUMP [Concomitant]

REACTIONS (1)
  - HYPOGLYCAEMIC COMA [None]
